FAERS Safety Report 5095972-9 (Version None)
Quarter: 2006Q3

REPORT INFORMATION
  Report Type: 
  Country: None (occurrence: None)
  Receive Date: 20060905
  Receipt Date: 20060829
  Transmission Date: 20061208
  Serious: Yes (Hospitalization)
  Sender: FDA-Public Use
  Company Number: BR-GLAXOSMITHKLINE-A0618512A

PATIENT
  Age: 80 Year
  Sex: Male
  Weight: 60.2 kg

DRUGS (1)
  1. DUTASTERIDE [Suspect]
     Indication: BENIGN PROSTATIC HYPERPLASIA
     Dosage: .5MG PER DAY
     Route: 048
     Dates: start: 20040729

REACTIONS (4)
  - CHOLELITHIASIS [None]
  - CONSTIPATION [None]
  - GASTRIC NEOPLASM [None]
  - YELLOW SKIN [None]
